FAERS Safety Report 8167991-7 (Version None)
Quarter: 2012Q1

REPORT INFORMATION
  Report Type: 
  Country: None (occurrence: None)
  Receive Date: 20120227
  Receipt Date: 20120221
  Transmission Date: 20120608
  Serious: Yes (Hospitalization)
  Sender: FDA-Public Use
  Company Number: JP-GLAXOSMITHKLINE-B0783756A

PATIENT
  Sex: Male

DRUGS (3)
  1. SELBEX [Concomitant]
     Indication: PROPHYLAXIS AGAINST GASTROINTESTINAL ULCER
     Dosage: 150MG PER DAY
     Route: 048
     Dates: start: 20120104, end: 20120112
  2. VALTREX [Suspect]
     Indication: HERPES ZOSTER
     Dosage: 3000MG PER DAY
     Route: 048
     Dates: start: 20120102, end: 20120109
  3. ACETAMINOPHEN [Concomitant]
     Indication: PAIN
     Dosage: 600MG PER DAY
     Route: 048
     Dates: start: 20120104, end: 20120112

REACTIONS (2)
  - FACIAL SPASM [None]
  - MUSCLE SPASMS [None]
